FAERS Safety Report 10528672 (Version 2)
Quarter: 2014Q4

REPORT INFORMATION
  Report Type: Spontaneous
  Country: RU (occurrence: RU)
  Receive Date: 20141020
  Receipt Date: 20141027
  Transmission Date: 20150528
  Serious: Yes (Life-Threatening)
  Sender: FDA-Public Use
  Company Number: RU-BAXTER-2014BAX061069

PATIENT

DRUGS (2)
  1. SUPRANE [Suspect]
     Active Substance: DESFLURANE
     Indication: GENERAL ANAESTHESIA
     Route: 065
  2. SUPRANE [Suspect]
     Active Substance: DESFLURANE
     Indication: CORONARY ARTERY BYPASS

REACTIONS (1)
  - Cardiac arrest [Recovering/Resolving]
